FAERS Safety Report 5816074-7 (Version None)
Quarter: 2008Q3

REPORT INFORMATION
  Report Type: 
  Country: None (occurrence: None)
  Receive Date: 20080721
  Receipt Date: 20080718
  Transmission Date: 20090109
  Serious: Yes (Life-Threatening, Hospitalization)
  Sender: FDA-Public Use
  Company Number: JP-SP-2008-00828

PATIENT
  Age: 73 Year
  Sex: Male

DRUGS (3)
  1. IMMUCYST [Suspect]
     Indication: BLADDER CANCER
     Route: 043
     Dates: start: 20070124, end: 20080305
  2. IMMUCYST [Suspect]
     Route: 043
     Dates: start: 20070124, end: 20080305
  3. DICLOFENAC SODIUM [Suspect]
     Indication: DYSURIA
     Route: 048
     Dates: start: 20080305, end: 20080307

REACTIONS (10)
  - ANOREXIA [None]
  - DISSEMINATED INTRAVASCULAR COAGULATION [None]
  - FATIGUE [None]
  - HEPATIC FUNCTION ABNORMAL [None]
  - INTERSTITIAL LUNG DISEASE [None]
  - MYALGIA [None]
  - PYREXIA [None]
  - RENAL FAILURE ACUTE [None]
  - RENAL IMPAIRMENT [None]
  - RHABDOMYOLYSIS [None]
